FAERS Safety Report 15545128 (Version 4)
Quarter: 2020Q2

REPORT INFORMATION
  Report Type: Spontaneous
  Country: FR (occurrence: FR)
  Receive Date: 20181024
  Receipt Date: 20200413
  Transmission Date: 20200713
  Serious: Yes (Other)
  Sender: FDA-Public Use
  Company Number: FR-AUROBINDO-AUR-APL-2018-051070

PATIENT
  Age: 63 Year
  Sex: Female

DRUGS (10)
  1. CARBOPLATIN. [Suspect]
     Active Substance: CARBOPLATIN
     Indication: OVARIAN CANCER RECURRENT
     Dosage: CYCLICAL (TARGET AREA UNDER THE CURVE, AUC 6)
     Route: 065
     Dates: start: 2012
  2. DOXORUBICIN [Concomitant]
     Active Substance: DOXORUBICIN
     Indication: PALLIATIVE CARE
     Dosage: UNK
     Route: 065
     Dates: start: 201405
  3. BEVACIZUMAB. [Suspect]
     Active Substance: BEVACIZUMAB
     Indication: OVARIAN CANCER RECURRENT
     Dosage: DURING CYCLES 3, 4 AND 5.
     Route: 065
  4. PACLITAXEL. [Concomitant]
     Active Substance: PACLITAXEL
     Indication: OVARIAN CANCER
     Dosage: 175 MILLIGRAM/SQ. METER, CYCLICAL (CYCLES 1, 2 AND 6)
     Route: 065
     Dates: start: 2012
  5. TRABECTEDIN [Concomitant]
     Active Substance: TRABECTEDIN
     Indication: PALLIATIVE CARE
     Dosage: UNK
     Route: 065
     Dates: start: 201405
  6. GEMCITABINE. [Suspect]
     Active Substance: GEMCITABINE
     Indication: OVARIAN CANCER RECURRENT
     Dosage: 1 DOSAGE FORM
     Route: 065
  7. GRANULOCYTE COLONY STIMULATING FACTOR [Suspect]
     Active Substance: GRANULOCYTE COLONY-STIMULATING FACTOR NOS
     Indication: PALLIATIVE CARE
     Dosage: UNK
     Route: 065
     Dates: start: 201406, end: 201502
  8. BEVACIZUMAB. [Concomitant]
     Active Substance: BEVACIZUMAB
     Indication: OVARIAN CANCER
     Dosage: 175 MILLIGRAM/SQ. METER (CYCLES 3, 4, AND 5)
     Route: 065
     Dates: start: 2012
  9. CARBOPLATIN. [Suspect]
     Active Substance: CARBOPLATIN
     Dosage: 1 DOSAGE FORM
     Route: 065
  10. PACLITAXEL. [Suspect]
     Active Substance: PACLITAXEL
     Indication: OVARIAN CANCER RECURRENT
     Dosage: 175 MILLIGRAM/SQ. METER
     Route: 065

REACTIONS (11)
  - Alopecia [Unknown]
  - Pneumonia [Unknown]
  - Asthenia [Unknown]
  - Neuropathy peripheral [Unknown]
  - Nausea [Unknown]
  - Anaemia [Unknown]
  - Thrombocytopenia [Unknown]
  - Neutropenia [Unknown]
  - Hypersensitivity [Unknown]
  - Malignant neoplasm progression [Unknown]
  - Toxicity to various agents [Unknown]

NARRATIVE: CASE EVENT DATE: 2012
